FAERS Safety Report 16457691 (Version 9)
Quarter: 2024Q3

REPORT INFORMATION
  Report Type: Report from Study
  Country: US (occurrence: US)
  Receive Date: 20190620
  Receipt Date: 20240731
  Transmission Date: 20241016
  Serious: Yes (Other)
  Sender: MYLAN
  Company Number: US-PFIZER INC-2019258247

PATIENT
  Sex: Female
  Weight: 93.44 kg

DRUGS (4)
  1. LYRICA [Suspect]
     Active Substance: PREGABALIN
     Indication: Fibromyalgia
     Dosage: 150 MILLIGRAM, QID
     Route: 048
  2. LYRICA [Suspect]
     Active Substance: PREGABALIN
     Indication: Pain
     Dosage: UNK QD, 1X/DAY (TAKING A DAY (INDICATING THAT SHE TAKING LESS THAN PRESCRIBED)
     Route: 065
  3. LYRICA [Suspect]
     Active Substance: PREGABALIN
     Indication: Neuralgia
  4. LYRICA [Suspect]
     Active Substance: PREGABALIN
     Indication: Diabetes mellitus

REACTIONS (14)
  - Neoplasm malignant [Unknown]
  - Weight increased [Unknown]
  - Nerve injury [Unknown]
  - Anxiety [Unknown]
  - Fungal skin infection [Unknown]
  - Hypersomnia [Unknown]
  - Intentional product use issue [Unknown]
  - Memory impairment [Unknown]
  - Depression [Unknown]
  - Hypersensitivity [Unknown]
  - Thyroid disorder [Unknown]
  - Peripheral swelling [Unknown]
  - Off label use [Unknown]
  - Therapeutic product effect incomplete [Unknown]

NARRATIVE: CASE EVENT DATE: 20120101
